FAERS Safety Report 10077599 (Version 2)
Quarter: 2014Q2

REPORT INFORMATION
  Report Type: Report from Study
  Country: US (occurrence: US)
  Receive Date: 20140414
  Receipt Date: 20140507
  Transmission Date: 20141212
  Serious: Yes (Hospitalization)
  Sender: FDA-Public Use
  Company Number: US-ACTELION-A-US2014-96985

PATIENT
  Age: 62 Year
  Sex: Female

DRUGS (3)
  1. TRACLEER [Suspect]
     Indication: PULMONARY ARTERIAL HYPERTENSION
     Dosage: UNK
     Route: 048
     Dates: start: 2010
  2. REMODULIN [Concomitant]
  3. XARELTO [Concomitant]

REACTIONS (7)
  - Cardiac pacemaker battery replacement [Recovered/Resolved]
  - Medical device complication [Recovered/Resolved]
  - Haemorrhage [Recovered/Resolved]
  - Abdominal wall haematoma [Recovered/Resolved]
  - Cardiac failure congestive [Recovered/Resolved]
  - Fluid overload [Recovered/Resolved]
  - Malaise [Recovered/Resolved]
